FAERS Safety Report 4627470-8 (Version None)
Quarter: 2005Q2

REPORT INFORMATION
  Report Type: 
  Country: None (occurrence: None)
  Receive Date: 20050405
  Receipt Date: 20050323
  Transmission Date: 20051028
  Serious: Yes (Hospitalization)
  Sender: FDA-Public Use
  Company Number: US-AMGEN-US122453

PATIENT
  Age: 42 Year
  Sex: Female

DRUGS (9)
  1. NEULASTA [Suspect]
     Indication: DRUG USE FOR UNKNOWN INDICATION
     Dates: end: 20050301
  2. ATOVAQUONE [Concomitant]
  3. VIDEX [Concomitant]
  4. GUAIFENESIN [Concomitant]
  5. VIRACEPT [Concomitant]
  6. NIFEDIPINE [Concomitant]
  7. TYLOX [Concomitant]
  8. VIREAD [Concomitant]
  9. ZOSYN [Concomitant]

REACTIONS (3)
  - BONE PAIN [None]
  - LEUKOCYTOSIS [None]
  - OVERDOSE [None]
